FAERS Safety Report 6166679-1 (Version None)
Quarter: 2009Q2

REPORT INFORMATION
  Report Type: 
  Country: None (occurrence: None)
  Receive Date: 20090424
  Receipt Date: 20090409
  Transmission Date: 20091009
  Serious: Yes (Other)
  Sender: FDA-Public Use
  Company Number: GB-ALEXION-A200900316

PATIENT
  Age: 32 Year
  Sex: Female

DRUGS (1)
  1. SOLIRIS [Suspect]
     Dosage: IN UTERO EXPOSURE

REACTIONS (3)
  - CAESAREAN SECTION [None]
  - DRUG EXPOSURE DURING PREGNANCY [None]
  - PRE-ECLAMPSIA [None]
